FAERS Safety Report 16157460 (Version 1)
Quarter: 2019Q2

REPORT INFORMATION
  Report Type: Spontaneous
  Country: US (occurrence: US)
  Receive Date: 20190403
  Receipt Date: 20190403
  Transmission Date: 20190711
  Serious: Yes (Hospitalization)
  Sender: FDA-Public Use
  Company Number: None

PATIENT
  Sex: Female

DRUGS (10)
  1. ENALAPRIL [Concomitant]
     Active Substance: ENALAPRIL
  2. ENBREL [Concomitant]
     Active Substance: ETANERCEPT
  3. FOLIC ACID. [Concomitant]
     Active Substance: FOLIC ACID
  4. SIMVASTATIN. [Concomitant]
     Active Substance: SIMVASTATIN
  5. REMICADE [Suspect]
     Active Substance: INFLIXIMAB
     Indication: RHEUMATOID ARTHRITIS
     Dosage: ?          OTHER FREQUENCY:EVERY 6 WEEKS;?
     Route: 042
     Dates: start: 20180927
  6. METHOTREXATE. [Concomitant]
     Active Substance: METHOTREXATE
  7. ARAVA [Concomitant]
     Active Substance: LEFLUNOMIDE
  8. INDAPAMIDE. [Concomitant]
     Active Substance: INDAPAMIDE
  9. VITAMIN D NOS [Concomitant]
     Active Substance: VITAMIN D NOS
  10. ONE DAILY [Concomitant]

REACTIONS (2)
  - Pneumonia [None]
  - Urinary tract infection [None]
